FAERS Safety Report 13001496 (Version 1)
Quarter: 2016Q4

REPORT INFORMATION
  Report Type: Spontaneous
  Country: US (occurrence: US)
  Receive Date: 20161205
  Receipt Date: 20161205
  Transmission Date: 20170207
  Serious: Yes (Disabling)
  Sender: FDA-Public Use
  Company Number: None

PATIENT
  Age: 33 Year
  Sex: Male
  Weight: 94.95 kg

DRUGS (3)
  1. ADDERRAL [Concomitant]
  2. CHOLONDINE [Concomitant]
  3. LUVOX [Suspect]
     Active Substance: FLUVOXAMINE MALEATE
     Indication: OBSESSIVE-COMPULSIVE DISORDER
     Route: 048
     Dates: start: 20160901, end: 20161113

REACTIONS (5)
  - Gait disturbance [None]
  - Limb immobilisation [None]
  - Hypoaesthesia [None]
  - Apathy [None]
  - Therapy change [None]

NARRATIVE: CASE EVENT DATE: 20161018
